FAERS Safety Report 4602611-7 (Version None)
Quarter: 2005Q1

REPORT INFORMATION
  Report Type: 
  Country: None (occurrence: None)
  Receive Date: 20050307
  Receipt Date: 20050222
  Transmission Date: 20050727
  Serious: Yes (Hospitalization, Other)
  Sender: FDA-Public Use
  Company Number: 2005034370

PATIENT
  Sex: Female

DRUGS (1)
  1. FELDENE [Suspect]
     Indication: ILL-DEFINED DISORDER
     Dates: start: 19870101

REACTIONS (5)
  - ARTHRITIS [None]
  - BENIGN GASTRIC NEOPLASM [None]
  - GASTROINTESTINAL HAEMORRHAGE [None]
  - GASTROINTESTINAL ULCER [None]
  - SMOKER [None]
